FAERS Safety Report 7078150-3 (Version None)
Quarter: 2010Q4

REPORT INFORMATION
  Report Type: 
  Country: None (occurrence: None)
  Receive Date: 20101101
  Receipt Date: 20101101
  Transmission Date: 20110411
  Serious: No
  Sender: FDA-Public Use
  Company Number: None

PATIENT
  Age: 25 Year
  Sex: Female
  Weight: 86.1834 kg

DRUGS (1)
  1. APLISOL [Suspect]
     Dosage: .1ML ID
     Dates: start: 20101026, end: 20101026

REACTIONS (5)
  - CONTUSION [None]
  - DIZZINESS [None]
  - INJECTION SITE HAEMATOMA [None]
  - INJECTION SITE URTICARIA [None]
  - PAPULE [None]
